FAERS Safety Report 10032678 (Version 2)
Quarter: 2014Q2

REPORT INFORMATION
  Report Type: Spontaneous
  Country: JP (occurrence: JP)
  Receive Date: 20140324
  Receipt Date: 20140520
  Transmission Date: 20141212
  Serious: Yes (Other)
  Sender: FDA-Public Use
  Company Number: JP-GLAXOSMITHKLINE-B0967695A

PATIENT
  Sex: Female
  Weight: 54 kg

DRUGS (1)
  1. LAMICTAL [Suspect]
     Indication: EPILEPSY
     Dosage: 25MG PER DAY
     Route: 048
     Dates: start: 20140205

REACTIONS (3)
  - Abortion spontaneous [Recovered/Resolved]
  - Rash [Recovered/Resolved]
  - Exposure during pregnancy [Unknown]
